FAERS Safety Report 15136586 (Version 6)
Quarter: 2018Q4

REPORT INFORMATION
  Report Type: Report from Study
  Country: US (occurrence: US)
  Receive Date: 20180712
  Receipt Date: 20181210
  Transmission Date: 20190204
  Serious: Yes (Death, Other)
  Sender: FDA-Public Use
  Company Number: US-ACTELION-A-US2018-175105

PATIENT
  Age: 60 Year
  Sex: Female
  Weight: 97.51 kg

DRUGS (6)
  1. TYVASO [Concomitant]
     Active Substance: TREPROSTINIL
     Dosage: 15 BREATHS, UNK
  2. OXYGEN. [Concomitant]
     Active Substance: OXYGEN
  3. OPSUMIT [Suspect]
     Active Substance: MACITENTAN
     Indication: PULMONARY ARTERIAL HYPERTENSION
     Dosage: 10 MG, QD
     Route: 048
  4. ADCIRCA [Concomitant]
     Active Substance: TADALAFIL
  5. ELIQUIS [Concomitant]
     Active Substance: APIXABAN
  6. AMLODIPINE [Concomitant]
     Active Substance: AMLODIPINE BESYLATE

REACTIONS (6)
  - Death [Fatal]
  - Diarrhoea [Unknown]
  - Squamous cell carcinoma of the oral cavity [Not Recovered/Not Resolved]
  - Dizziness [Recovering/Resolving]
  - Syncope [Unknown]
  - Infection [Unknown]

NARRATIVE: CASE EVENT DATE: 201806
